FAERS Safety Report 20039089 (Version 2)
Quarter: 2021Q4

REPORT INFORMATION
  Report Type: Spontaneous
  Country: US (occurrence: US)
  Receive Date: 20211105
  Receipt Date: 20211207
  Transmission Date: 20220303
  Serious: Yes (Other)
  Sender: FDA-Public Use
  Company Number: US-BAYER-2021A242431

PATIENT
  Age: 31 Year
  Sex: Male

DRUGS (2)
  1. KOGENATE FS [Suspect]
     Active Substance: ANTIHEMOPHILIC FACTOR, HUMAN RECOMBINANT
     Dosage: 5100 IU, PRN, EVERY 12-24 HOURS
     Route: 042
  2. KOGENATE FS [Suspect]
     Active Substance: ANTIHEMOPHILIC FACTOR, HUMAN RECOMBINANT
     Dosage: 2 DF; INFUSED FOR RIGHT ANKLE BLEED
     Route: 042
     Dates: start: 20211031

REACTIONS (2)
  - Haemarthrosis [Not Recovered/Not Resolved]
  - Ligament sprain [None]

NARRATIVE: CASE EVENT DATE: 20211031
